FAERS Safety Report 23026421 (Version 1)
Quarter: 2023Q4

REPORT INFORMATION
  Report Type: Spontaneous
  Country: CA (occurrence: CA)
  Receive Date: 20231004
  Receipt Date: 20231004
  Transmission Date: 20240110
  Serious: Yes (Life-Threatening, Hospitalization, Other)
  Sender: FDA-Public Use
  Company Number: CA-AUROBINDO-AUR-APL-2023-061108

PATIENT
  Age: 65 Year
  Sex: Female
  Weight: 64 kg

DRUGS (7)
  1. HYDROCORTISONE [Suspect]
     Active Substance: HYDROCORTISONE
     Indication: Adrenal insufficiency
     Dosage: UNK
     Route: 065
  2. MORPHINE [Suspect]
     Active Substance: MORPHINE
     Indication: Product used for unknown indication
     Dosage: UNK
     Route: 065
  3. OMALIZUMAB [Suspect]
     Active Substance: OMALIZUMAB
     Indication: Asthma
     Dosage: 150 MILLIGRAM
     Route: 058
  4. OMALIZUMAB [Suspect]
     Active Substance: OMALIZUMAB
     Dosage: UNK
     Route: 058
  5. OMALIZUMAB [Suspect]
     Active Substance: OMALIZUMAB
     Dosage: UNK
     Route: 065
  6. VENTOLIN [Suspect]
     Active Substance: ALBUTEROL SULFATE
     Indication: Oxygen saturation decreased
     Dosage: UNK
     Route: 065
  7. VENTOLIN [Suspect]
     Active Substance: ALBUTEROL SULFATE
     Indication: Dyspnoea

REACTIONS (31)
  - Abdominal pain [Recovered/Resolved]
  - Adrenal insufficiency [Recovered/Resolved]
  - Asthma [Recovered/Resolved]
  - Basophil count increased [Recovered/Resolved]
  - Bronchitis [Recovered/Resolved]
  - Carpal tunnel syndrome [Recovered/Resolved]
  - Cellulitis [Recovered/Resolved]
  - Cough [Recovered/Resolved]
  - Decreased activity [Recovered/Resolved]
  - Dyspnoea [Recovered/Resolved]
  - Epiglottitis [Recovered/Resolved]
  - Illness [Recovered/Resolved]
  - Injury [Recovered/Resolved]
  - Lung disorder [Recovered/Resolved]
  - Ovarian cyst [Recovered/Resolved]
  - Oxygen saturation decreased [Recovered/Resolved]
  - Pain [Recovered/Resolved]
  - Parkinson^s disease [Recovered/Resolved]
  - Pneumonia [Recovered/Resolved]
  - Productive cough [Recovered/Resolved]
  - Pyrexia [Recovered/Resolved]
  - Seasonal allergy [Recovered/Resolved]
  - Sepsis [Recovered/Resolved]
  - Sinus pain [Recovered/Resolved]
  - Sinusitis [Recovered/Resolved]
  - Thyroid disorder [Recovered/Resolved]
  - Tremor [Recovered/Resolved]
  - Weight decreased [Recovered/Resolved]
  - Weight increased [Recovered/Resolved]
  - White blood cell count decreased [Recovered/Resolved]
  - Inappropriate schedule of product administration [Recovered/Resolved]
